FAERS Safety Report 24412425 (Version 1)
Quarter: 2024Q4

REPORT INFORMATION
  Report Type: Spontaneous
  Country: US (occurrence: US)
  Receive Date: 20241008
  Receipt Date: 20241008
  Transmission Date: 20250115
  Serious: No
  Sender: BAYER
  Company Number: US-BAYER-2024A140707

PATIENT
  Age: 73 Year
  Sex: Female

DRUGS (2)
  1. MIRENA [Suspect]
     Active Substance: LEVONORGESTREL
     Indication: Menstruation irregular
     Dosage: 20?G/DAY
     Route: 015
     Dates: start: 20240117
  2. MIRENA [Suspect]
     Active Substance: LEVONORGESTREL
     Indication: Haemorrhagic disorder

REACTIONS (6)
  - Alopecia [None]
  - Back pain [None]
  - Groin pain [None]
  - Abdominal pain lower [None]
  - Muscle spasms [None]
  - Vaginal haemorrhage [None]
